FAERS Safety Report 8938076 (Version 1)
Quarter: 2012Q4

REPORT INFORMATION
  Report Type: Spontaneous
  Country: US (occurrence: None)
  Receive Date: 20121121
  Receipt Date: 20121121
  Transmission Date: 20130627
  Serious: No
  Sender: FDA-Public Use
  Company Number: 2012-19633

PATIENT
  Sex: Female
  Weight: 2.4 kg

DRUGS (1)
  1. CITALOPRAM [Suspect]
     Indication: DEPRESIION
     Route: 064
     Dates: start: 20100828, end: 20110502

REACTIONS (7)
  - Premature baby [None]
  - Talipes [None]
  - Ventricular extrasystoles [None]
  - Atrial septal defect [None]
  - Temperature regulation disorder [None]
  - Hyperbilirubinaemia [None]
  - Maternal drugs affecting foetus [None]
